FAERS Safety Report 5328956-3 (Version None)
Quarter: 2007Q2

REPORT INFORMATION
  Report Type: 
  Country: None (occurrence: None)
  Receive Date: 20070518
  Receipt Date: 20070507
  Transmission Date: 20071010
  Serious: Yes (Other)
  Sender: FDA-Public Use
  Company Number: JP-SANOFI-SYNTHELABO-A01200704229

PATIENT
  Sex: Female
  Weight: 43 kg

DRUGS (11)
  1. LANDSEN [Concomitant]
     Indication: CEREBRAL INFARCTION
     Dosage: 0.5 MG
     Route: 048
     Dates: start: 20040224
  2. LANDSEN [Concomitant]
     Indication: AUTONOMIC NEUROPATHY
     Dosage: 0.5 MG
     Route: 048
     Dates: start: 20040224
  3. OMEPRAL [Concomitant]
     Indication: REFLUX OESOPHAGITIS
     Route: 048
     Dates: start: 20061108
  4. LUVOX [Concomitant]
     Indication: DEPRESSION
     Route: 048
     Dates: start: 20040510
  5. LUVOX [Concomitant]
     Indication: CEREBRAL INFARCTION
     Route: 048
     Dates: start: 20040510
  6. GABALON [Concomitant]
     Indication: SPASTIC PARALYSIS
     Route: 048
     Dates: start: 20050729, end: 20070424
  7. GABALON [Concomitant]
     Indication: SPINAL OSTEOARTHRITIS
     Route: 048
     Dates: start: 20050729, end: 20070424
  8. PROSNER [Concomitant]
     Indication: ARTERIAL OCCLUSIVE DISEASE
     Route: 048
     Dates: start: 20040322, end: 20070424
  9. PLAVIX [Suspect]
     Indication: CEREBRAL INFARCTION
     Route: 048
     Dates: start: 20070404, end: 20070423
  10. BLOPRESS [Concomitant]
     Indication: HYPERTENSION
     Route: 048
     Dates: start: 20040224
  11. ALINAMIN F [Concomitant]
     Indication: SPINAL OSTEOARTHRITIS
     Route: 048
     Dates: start: 20050729, end: 20070424

REACTIONS (6)
  - ALANINE AMINOTRANSFERASE INCREASED [None]
  - ASPARTATE AMINOTRANSFERASE INCREASED [None]
  - BLOOD CREATINE PHOSPHOKINASE INCREASED [None]
  - LIVER DISORDER [None]
  - MUSCLE DISORDER [None]
  - PLEURAL EFFUSION [None]
